FAERS Safety Report 18014264 (Version 2)
Quarter: 2023Q4

REPORT INFORMATION
  Report Type: Report from Study
  Country: FR (occurrence: FR)
  Receive Date: 20200713
  Receipt Date: 20231103
  Transmission Date: 20240109
  Serious: Yes (Death, Other)
  Sender: FDA-Public Use
  Company Number: FR-JNJFOC-20200709953

PATIENT
  Age: 68 Year
  Sex: Male

DRUGS (3)
  1. BORTEZOMIB [Suspect]
     Active Substance: BORTEZOMIB
     Indication: Plasma cell myeloma
     Dosage: 1.3 MILLIGRAM/SQ. METER, 1/WEEK
     Route: 065
     Dates: end: 20180819
  2. PREDNISONE [Suspect]
     Active Substance: PREDNISONE
     Indication: Plasma cell myeloma
     Dosage: 0.5 MILLIGRAM/KILOGRAM, 4/WEEK
     Route: 065
     Dates: end: 20180819
  3. MELPHALAN [Suspect]
     Active Substance: MELPHALAN
     Indication: Plasma cell myeloma
     Dosage: 0.3 MILLIGRAM/KILOGRAM, 4/WEEK
     Route: 065
     Dates: end: 20180819

REACTIONS (3)
  - Plasma cell myeloma [Fatal]
  - Intentional product use issue [Unknown]
  - Off label use [Unknown]
